FAERS Safety Report 11466629 (Version 1)
Quarter: 2015Q3

REPORT INFORMATION
  Report Type: Spontaneous
  Country: US (occurrence: US)
  Receive Date: 20150907
  Receipt Date: 20150907
  Transmission Date: 20151125
  Serious: No
  Sender: FDA-Public Use
  Company Number: GXBR2015US001813

PATIENT
  Sex: Male

DRUGS (1)
  1. ZINC OXIDE. [Suspect]
     Active Substance: ZINC OXIDE
     Indication: PROPHYLAXIS
     Dosage: UNK DF, UNK
     Route: 061

REACTIONS (1)
  - Product use issue [Not Recovered/Not Resolved]
